FAERS Safety Report 7627264 (Version 5)
Quarter: 2018Q1

REPORT INFORMATION
  Report Type: Spontaneous
  Country: US (occurrence: US)
  Receive Date: 20101013
  Receipt Date: 20180320
  Transmission Date: 20180509
  Serious: No
  Sender: FDA-Public Use
  Company Number: US-ASTRAZENECA-2010SE08901

PATIENT
  Age: 770 Month
  Sex: Female
  Weight: 59 kg

DRUGS (8)
  1. TUDORZA PRESSAIR [Suspect]
     Active Substance: ACLIDINIUM BROMIDE
     Indication: CHEST DISCOMFORT
     Dosage: 400 MCG, 1 PUFF IN THE MORNING A 1 PUFF IN THE EVENING
     Route: 055
     Dates: start: 20150911
  2. LEVOTHYROXINE. [Concomitant]
     Active Substance: LEVOTHYROXINE
  3. SYMBICORT [Suspect]
     Active Substance: BUDESONIDE\FORMOTEROL FUMARATE DIHYDRATE
     Indication: CHRONIC OBSTRUCTIVE PULMONARY DISEASE
     Dosage: 160/4.5 UG 1 PUFF 2 TIMES DAY
     Route: 055
  4. XOPENEX [Concomitant]
     Active Substance: LEVALBUTEROL HYDROCHLORIDE
     Dosage: AS REQUIRED
     Route: 055
  5. LISINOPRIL. [Concomitant]
     Active Substance: LISINOPRIL
  6. PREDNISONE. [Concomitant]
     Active Substance: PREDNISONE
  7. LEVABUTEROL NEBULIZER [Concomitant]
     Dosage: 1.25MG AS REQUIRED
     Route: 055
  8. SYMBICORT [Suspect]
     Active Substance: BUDESONIDE\FORMOTEROL FUMARATE DIHYDRATE
     Indication: CHRONIC OBSTRUCTIVE PULMONARY DISEASE
     Dosage: 160/4.5 MCG 2 PUFFS 2 TIMES DAY
     Route: 055
     Dates: start: 200810

REACTIONS (11)
  - Device malfunction [Unknown]
  - Drug dose omission [Unknown]
  - Off label use [Unknown]
  - Pain [Not Recovered/Not Resolved]
  - Dyspnoea [Unknown]
  - Product storage error [Unknown]
  - Chest discomfort [Unknown]
  - Chest pain [Unknown]
  - Drug ineffective [Unknown]
  - Lung disorder [Unknown]
  - Candida infection [Unknown]

NARRATIVE: CASE EVENT DATE: 200911
